FAERS Safety Report 24737434 (Version 1)
Quarter: 2024Q4

REPORT INFORMATION
  Report Type: Spontaneous
  Country: US (occurrence: None)
  Receive Date: 20241214
  Receipt Date: 20241214
  Transmission Date: 20250115
  Serious: Yes (Hospitalization)
  Sender: Public
  Company Number: None

PATIENT
  Sex: Male
  Weight: 58 kg

DRUGS (2)
  1. XELODA [Suspect]
     Active Substance: CAPECITABINE
  2. ELOXATIN [Suspect]
     Active Substance: OXALIPLATIN

REACTIONS (3)
  - Back pain [None]
  - Osteomyelitis [None]
  - Osteopenia [None]

NARRATIVE: CASE EVENT DATE: 20240827
